FAERS Safety Report 22522063 (Version 1)
Quarter: 2023Q2

REPORT INFORMATION
  Report Type: Spontaneous
  Country: US (occurrence: US)
  Receive Date: 20230605
  Receipt Date: 20230605
  Transmission Date: 20230721
  Serious: Yes (Other)
  Sender: FDA-Public Use
  Company Number: US-002147023-NVSC2023US124218

PATIENT

DRUGS (14)
  1. CARBOPLATIN [Suspect]
     Active Substance: CARBOPLATIN
     Indication: Diffuse large B-cell lymphoma
     Dosage: 800 MG, CYCLIC (MAXIMUM DOSE) INTRAVENOUS PIGGY BAG, ON DAY 5
     Route: 042
  2. RITUXIMAB [Suspect]
     Active Substance: RITUXIMAB
     Indication: Diffuse large B-cell lymphoma
     Dosage: 375 MG/M2, CYCLIC, ON DAY 3
     Route: 042
  3. ETOPOSIDE [Suspect]
     Active Substance: ETOPOSIDE
     Indication: Diffuse large B-cell lymphoma
     Dosage: 100 MG/M2 (IVPB ON DAYS 4-6)
     Route: 042
  4. IFOSFAMIDE [Suspect]
     Active Substance: IFOSFAMIDE
     Indication: Diffuse large B-cell lymphoma
     Dosage: 5G/M2 ADMIXED WITH MESNA (SODIUM 2-MERCAPTOETHANE SULFONATE) 5G/M2 CIVI OVER 24 HOURS BEGINNING ON D
     Route: 042
  5. CARFILZOMIB [Suspect]
     Active Substance: CARFILZOMIB
     Indication: Diffuse large B-cell lymphoma
     Dosage: 10 MG/M2, CYCLIC (DOSE LEVEL 1, ON DAYS 1-2, DAYS 8-9)
     Route: 042
  6. CARFILZOMIB [Suspect]
     Active Substance: CARFILZOMIB
     Dosage: 15 MG/M2, CYCLIC (DOSE LEVEL 2, ON DAYS 1-2, DAYS 8-9)
     Route: 042
  7. CARFILZOMIB [Suspect]
     Active Substance: CARFILZOMIB
     Dosage: 20 MG/M2, CYCLIC (DOSE LEVEL 3, ON DAYS 1-2, DAYS 8-9)
     Route: 042
  8. CARFILZOMIB [Suspect]
     Active Substance: CARFILZOMIB
     Dosage: 20 MG/M2, CYCLIC (DOSE LEVEL 4, ON DAYS 1-2)
     Route: 042
  9. CARFILZOMIB [Suspect]
     Active Substance: CARFILZOMIB
     Dosage: 27 MG/M2, CYCLIC (DOSE LEVEL 4, ON DAYS 8-9)
     Route: 042
  10. CARFILZOMIB [Suspect]
     Active Substance: CARFILZOMIB
     Dosage: 20 MG/M2, CYCLIC (DOSE LEVEL 5, ON DAYS 1-2)
     Route: 042
  11. CARFILZOMIB [Suspect]
     Active Substance: CARFILZOMIB
     Dosage: 36 MG/M2, CYCLIC (DOSE LEVEL 5, ON DAYS 8-9)
     Route: 042
  12. CARFILZOMIB [Suspect]
     Active Substance: CARFILZOMIB
     Dosage: 20 MG/M2, CYCLIC (DOSE LEVEL 6, ON DAYS 1-2)
     Route: 042
  13. CARFILZOMIB [Suspect]
     Active Substance: CARFILZOMIB
     Dosage: 45 MG/M2, CYCLIC (DOSE LEVEL 6, ON DAYS 8-9)
     Route: 042
  14. PEGFILGRASTIM [Concomitant]
     Active Substance: PEGFILGRASTIM
     Indication: Product used for unknown indication
     Dosage: 6MG SQ ON DAY 8
     Route: 065

REACTIONS (3)
  - Diffuse large B-cell lymphoma [Unknown]
  - Malignant neoplasm progression [Unknown]
  - Product use in unapproved indication [Unknown]
